FAERS Safety Report 24465214 (Version 1)
Quarter: 2024Q4

REPORT INFORMATION
  Report Type: Spontaneous
  Country: US (occurrence: US)
  Receive Date: 20241018
  Receipt Date: 20241018
  Transmission Date: 20250114
  Serious: No
  Sender: ROCHE
  Company Number: US-ROCHE-3527841

PATIENT
  Age: 4 Month
  Sex: Female

DRUGS (1)
  1. XOLAIR [Suspect]
     Active Substance: OMALIZUMAB
     Indication: Food allergy
     Dosage: STRENGTH: 75MGX2
     Route: 030
     Dates: start: 20230701, end: 20231231

REACTIONS (2)
  - Off label use [Unknown]
  - No adverse event [Unknown]
